FAERS Safety Report 17102368 (Version 1)
Quarter: 2019Q4

REPORT INFORMATION
  Report Type: Spontaneous
  Country: US (occurrence: US)
  Receive Date: 20191106
  Receipt Date: 20191106
  Transmission Date: 20200122
  Serious: Yes (Hospitalization)
  Sender: FDA-Public Use
  Company Number: None

PATIENT
  Sex: Female

DRUGS (8)
  1. METHYLPHENID [Concomitant]
     Active Substance: METHYLPHENIDATE
  2. TYLENOL [Concomitant]
     Active Substance: ACETAMINOPHEN
  3. VITAMIN C [Concomitant]
     Active Substance: ASCORBIC ACID
  4. ZOFRAN [Concomitant]
     Active Substance: ONDANSETRON HYDROCHLORIDE
  5. BENLYSTA [Suspect]
     Active Substance: BELIMUMAB
     Indication: SYSTEMIC LUPUS ERYTHEMATOSUS
     Route: 058
     Dates: start: 201911
  6. ASPIRIN. [Concomitant]
     Active Substance: ASPIRIN
  7. BETAMETH DIP OIN [Concomitant]
  8. MULTIVITAMIN [Concomitant]
     Active Substance: VITAMINS

REACTIONS (1)
  - Systemic lupus erythematosus [None]
